FAERS Safety Report 4861395-8 (Version None)
Quarter: 2005Q4

REPORT INFORMATION
  Report Type: 
  Country: None (occurrence: None)
  Receive Date: 20051220
  Receipt Date: 20051206
  Transmission Date: 20060501
  Serious: Yes (Death, Hospitalization)
  Sender: FDA-Public Use
  Company Number: PHBS2005JP18039

PATIENT
  Age: 57 Year
  Sex: Female
  Weight: 56 kg

DRUGS (2)
  1. IMIPRAMINE [Suspect]
     Indication: DEPRESSION
     Route: 065
  2. IMIPRAMINE [Suspect]
     Route: 065

REACTIONS (9)
  - BRAIN OEDEMA [None]
  - CARDIO-RESPIRATORY ARREST [None]
  - COMA [None]
  - DRUG LEVEL INCREASED [None]
  - DRUG TOXICITY [None]
  - MYOCARDIAL FIBROSIS [None]
  - OVERDOSE [None]
  - PULMONARY CONGESTION [None]
  - RESUSCITATION [None]
